FAERS Safety Report 17432787 (Version 1)
Quarter: 2020Q1

REPORT INFORMATION
  Report Type: Spontaneous
  Country: FR (occurrence: FR)
  Receive Date: 20200218
  Receipt Date: 20200218
  Transmission Date: 20200409
  Serious: Yes (Hospitalization, Other)
  Sender: FDA-Public Use
  Company Number: FR-AUROBINDO-AUR-APL-2020-008209

PATIENT
  Age: 86 Year
  Sex: Female

DRUGS (1)
  1. CAPECITABINE. [Suspect]
     Active Substance: CAPECITABINE
     Indication: BREAST CANCER
     Dosage: 2000 MILLIGRAM, ONCE A DAY, 2 SEM/3
     Route: 048

REACTIONS (1)
  - Dermatitis bullous [Unknown]

NARRATIVE: CASE EVENT DATE: 20191212
